FAERS Safety Report 19849419 (Version 1)
Quarter: 2021Q3

REPORT INFORMATION
  Report Type: Spontaneous
  Country: DE (occurrence: DE)
  Receive Date: 20210917
  Receipt Date: 20210917
  Transmission Date: 20211014
  Serious: Yes (Hospitalization)
  Sender: FDA-Public Use
  Company Number: DE-TEVA-2021-DE-1953018

PATIENT
  Age: 82 Year
  Sex: Male
  Weight: 82 kg

DRUGS (11)
  1. CANDESARTAN. [Interacting]
     Active Substance: CANDESARTAN
     Dosage: 16 MILLIGRAM DAILY;  0?0?1?0
     Route: 048
  2. ATORVASTATIN [Concomitant]
     Active Substance: ATORVASTATIN
     Dosage: 40 MILLIGRAM DAILY; 0?0?1?0
     Route: 048
  3. ANORO 55MIKROGRAMM/22MIKROGRAMM [Concomitant]
     Active Substance: UMECLIDINIUM BROMIDE\VILANTEROL TRIFENATATE
     Dosage: 1 DOSAGE FORMS DAILY; 1?0?0?0
     Route: 055
  4. SITAGLIPTIN [Interacting]
     Active Substance: SITAGLIPTIN
     Dosage: 100 MILLIGRAM DAILY; 1?0?1?0:MEDICATION ERRORS
     Route: 048
  5. FOLSAURE [Concomitant]
     Active Substance: FOLIC ACID
     Dosage: 5 MILLIGRAM DAILY; 1?0?0?0
     Route: 048
  6. ALLOPURINOL. [Interacting]
     Active Substance: ALLOPURINOL
     Dosage: 100 MILLIGRAM DAILY; 0?0?1?0
     Route: 048
  7. OMEPRAZOL [Concomitant]
     Active Substance: OMEPRAZOLE
     Dosage: 20 MG, REQUIREMENT, GASTRIC JUICE?RESISTANT TAB OR CAPS
     Route: 048
  8. TORASEMIDE [Suspect]
     Active Substance: TORSEMIDE
     Dosage: 10 MILLIGRAM DAILY; 1?0?0?0:MEDICATION ERRORS
     Route: 048
  9. EMPAGLIFLOZIN [Suspect]
     Active Substance: EMPAGLIFLOZIN
     Dosage: 10 MILLIGRAM DAILY; 0?1?0?0:MEDICATION ERRORS
     Route: 048
  10. TAMSULOSIN [Concomitant]
     Active Substance: TAMSULOSIN
     Dosage: .4 MILLIGRAM DAILY; 0?0?1?0, SUSTAINED?RELEASE TABLETS
     Route: 048
  11. METOPROLOL. [Concomitant]
     Active Substance: METOPROLOL
     Dosage: 47.5 MILLIGRAM DAILY; 1?0?0?0, SUSTAINED?RELEASE TABLETS
     Route: 048

REACTIONS (8)
  - Labelled drug-drug interaction medication error [Unknown]
  - Diabetic nephropathy [Unknown]
  - Metabolic acidosis [Unknown]
  - Hyperkalaemia [Unknown]
  - Renal failure [Unknown]
  - Product prescribing error [Unknown]
  - Product monitoring error [Unknown]
  - Medication error [Unknown]
